FAERS Safety Report 8609570-0 (Version None)
Quarter: 2012Q3

REPORT INFORMATION
  Report Type: 
  Country: None (occurrence: None)
  Receive Date: 20120810
  Receipt Date: 20120810
  Transmission Date: 20120928
  Serious: No
  Sender: FDA-Public Use
  Company Number: None

PATIENT
  Age: 23 Year
  Sex: Female
  Weight: 72.1219 kg

DRUGS (1)
  1. LANTUS [Suspect]

REACTIONS (1)
  - PREGNANCY WITH CONTRACEPTIVE DEVICE [None]
